FAERS Safety Report 20347625 (Version 3)
Quarter: 2022Q2

REPORT INFORMATION
  Report Type: Spontaneous
  Country: JP (occurrence: JP)
  Receive Date: 20220118
  Receipt Date: 20220601
  Transmission Date: 20220720
  Serious: Yes (Hospitalization)
  Sender: FDA-Public Use
  Company Number: JP-NOVARTISPH-NVSJ2022JP000901

PATIENT
  Age: 87 Year
  Sex: Male

DRUGS (1)
  1. RIVASTIGMINE [Suspect]
     Active Substance: RIVASTIGMINE
     Indication: Dementia Alzheimer^s type
     Dosage: 198 MG, MISTOOK TRANSDERMAL RIVASTIGMINE 18MG (TOTAL OF 11)(TAPE (INCLUDING POULTICE)
     Route: 062

REACTIONS (12)
  - Fall [Recovering/Resolving]
  - Toxicity to various agents [Recovering/Resolving]
  - Unresponsive to stimuli [Recovering/Resolving]
  - Altered state of consciousness [Recovering/Resolving]
  - Restlessness [Recovering/Resolving]
  - Miosis [Recovering/Resolving]
  - Hyperhidrosis [Recovering/Resolving]
  - Salivary hypersecretion [Recovering/Resolving]
  - Tremor [Recovering/Resolving]
  - Bradycardia [Recovering/Resolving]
  - Product administration error [Unknown]
  - Accidental overdose [Unknown]
